FAERS Safety Report 21795816 (Version 6)
Quarter: 2023Q1

REPORT INFORMATION
  Report Type: Spontaneous
  Country: CN (occurrence: CN)
  Receive Date: 20221229
  Receipt Date: 20230228
  Transmission Date: 20230418
  Serious: Yes (Hospitalization, Other)
  Sender: FDA-Public Use
  Company Number: CN-BEIGENE AUS PTY LTD-BGN-2022-012045

PATIENT
  Age: 35 Year
  Sex: Male
  Weight: 84 kg

DRUGS (23)
  1. AZACITIDINE [Suspect]
     Active Substance: AZACITIDINE
     Indication: Myelodysplastic syndrome
     Route: 042
     Dates: start: 20221215, end: 20221221
  2. BGB-11417 [Suspect]
     Active Substance: BGB-11417
     Indication: Myelodysplastic syndrome
     Dosage: TABLET, FILM COATED
     Route: 048
     Dates: start: 20221215
  3. BGB-11417 [Suspect]
     Active Substance: BGB-11417
     Route: 048
     Dates: start: 20221216
  4. BGB-11417 [Suspect]
     Active Substance: BGB-11417
     Dosage: TABLET, FILM COATED
     Route: 048
     Dates: start: 20221217
  5. BGB-11417 [Suspect]
     Active Substance: BGB-11417
     Dosage: TABLET, FILM COATED
     Route: 048
     Dates: start: 20221218, end: 20221224
  6. LEVOFLOXACIN [Concomitant]
     Active Substance: LEVOFLOXACIN
     Indication: Pneumonia
     Route: 042
     Dates: start: 20221118, end: 20221126
  7. PIPERACILLIN SODIUM [Concomitant]
     Active Substance: PIPERACILLIN SODIUM
     Indication: Pneumonia
     Route: 042
     Dates: start: 20221118, end: 20221126
  8. VITAMIN C [Concomitant]
     Active Substance: ASCORBIC ACID
     Indication: Nutritional supplementation
     Route: 042
     Dates: start: 20221118, end: 20221126
  9. AZASETRON HYDROCHLORIDE AND SODIUM CHLORIDE [Concomitant]
     Indication: Prophylaxis
     Dates: start: 20221215, end: 20221221
  10. CALCIUM GLUCONATE [Concomitant]
     Active Substance: CALCIUM GLUCONATE
     Indication: Allergy prophylaxis
     Dates: start: 20221215, end: 20221221
  11. TORSEMIDE [Concomitant]
     Active Substance: TORSEMIDE
     Indication: Prophylaxis
     Dates: start: 20221215, end: 20221221
  12. AMIFOSTINE [Concomitant]
     Active Substance: AMIFOSTINE
     Indication: Prophylaxis
     Dates: start: 20221215, end: 20221221
  13. POTASSIUM CHLORIDE [Concomitant]
     Active Substance: POTASSIUM CHLORIDE
     Indication: Mineral supplementation
     Dates: start: 20221220, end: 20221221
  14. POTASSIUM CHLORIDE [Concomitant]
     Active Substance: POTASSIUM CHLORIDE
     Dates: start: 20221219, end: 20221219
  15. FOSAPREPITANT DIMEGLUMINE [Concomitant]
     Active Substance: FOSAPREPITANT DIMEGLUMINE
     Indication: Prophylaxis of nausea and vomiting
     Dates: start: 20221218, end: 20221218
  16. FOSAPREPITANT DIMEGLUMINE [Concomitant]
     Active Substance: FOSAPREPITANT DIMEGLUMINE
     Dates: start: 20221221, end: 20221221
  17. FOSAPREPITANT DIMEGLUMINE [Concomitant]
     Active Substance: FOSAPREPITANT DIMEGLUMINE
     Dates: start: 20221215, end: 20221215
  18. RUPATADINE FUMARATE [Concomitant]
     Active Substance: RUPATADINE FUMARATE
     Indication: Allergy prophylaxis
     Dates: start: 20221221, end: 20221221
  19. RUPATADINE FUMARATE [Concomitant]
     Active Substance: RUPATADINE FUMARATE
     Dates: start: 20221216, end: 20221217
  20. MANNATIDE [Concomitant]
     Indication: Prophylaxis
     Dates: start: 20221213, end: 20221221
  21. COMPOUND VITAMIN (3) [Concomitant]
     Indication: Vitamin supplementation
     Dates: start: 20221213, end: 20221221
  22. SODIUM ACETATE RINGER [Concomitant]
     Indication: Fluid replacement
     Dates: start: 20221213, end: 20221217
  23. AMINOCAPROIC ACID [Concomitant]
     Active Substance: AMINOCAPROIC ACID
     Indication: Haemorrhage prophylaxis
     Dates: start: 20221214, end: 20221218

REACTIONS (2)
  - COVID-19 pneumonia [Not Recovered/Not Resolved]
  - Pleural effusion [Recovering/Resolving]

NARRATIVE: CASE EVENT DATE: 20221224
